FAERS Safety Report 5826263-3 (Version None)
Quarter: 2008Q3

REPORT INFORMATION
  Report Type: 
  Country: None (occurrence: None)
  Receive Date: 20080729
  Receipt Date: 20080717
  Transmission Date: 20090109
  Serious: Yes (Other)
  Sender: FDA-Public Use
  Company Number: US-PFIZER INC-2008038519

PATIENT
  Sex: Female
  Weight: 99.3 kg

DRUGS (6)
  1. LYRICA [Suspect]
     Indication: FIBROMYALGIA
     Route: 048
     Dates: start: 20080418, end: 20080429
  2. ZYPREXA [Concomitant]
  3. CYMBALTA [Concomitant]
     Route: 048
  4. FLEXERIL [Concomitant]
     Route: 048
  5. OXYCONTIN [Concomitant]
     Route: 048
  6. OXYCODONE HCL [Concomitant]
     Route: 048

REACTIONS (2)
  - DEPRESSION [None]
  - SUICIDAL IDEATION [None]
